FAERS Safety Report 10004645 (Version 2)
Quarter: 2014Q2

REPORT INFORMATION
  Report Type: Spontaneous
  Country: US (occurrence: US)
  Receive Date: 20140312
  Receipt Date: 20140611
  Transmission Date: 20141212
  Serious: No
  Sender: FDA-Public Use
  Company Number: US-INCYTE CORPORATION-2014IN000399

PATIENT
  Sex: Female

DRUGS (22)
  1. JAKAFI [Suspect]
     Indication: MYELOFIBROSIS
     Dosage: 5 MG, BID
     Route: 048
     Dates: start: 201301
  2. PREDNISONE [Suspect]
  3. ACIPHEX [Concomitant]
  4. LUMIGAN [Concomitant]
  5. XANAX [Concomitant]
  6. IRON TRIVALENT, ORAL PREPARATIONS [Concomitant]
  7. AMBIEN [Concomitant]
  8. SANCTURA [Concomitant]
  9. CELEBREX [Concomitant]
  10. SERTRALINE HCL [Concomitant]
  11. CHOLESTYRAMINE [Concomitant]
  12. VOLTAREN                           /00372301/ [Concomitant]
  13. FLECTOR                            /00372302/ [Concomitant]
  14. TYLENOL 8 HOUR [Concomitant]
  15. VITAMINS NOS [Concomitant]
  16. VENTOLIN HFA [Concomitant]
  17. DULERA [Concomitant]
  18. VITAMIN C                          /00008001/ [Concomitant]
  19. OSTEO BI-FLEX                      /01431201/ [Concomitant]
  20. VITAMIN D3 [Concomitant]
  21. SINGULAIR [Concomitant]
  22. LEVOTHYROXINE SODIUM [Concomitant]

REACTIONS (3)
  - Atrial fibrillation [Unknown]
  - Glaucoma [Unknown]
  - Transfusion [Recovered/Resolved]
